FAERS Safety Report 23971102 (Version 1)
Quarter: 2024Q2

REPORT INFORMATION
  Report Type: Spontaneous
  Country: CN (occurrence: CN)
  Receive Date: 20240613
  Receipt Date: 20240613
  Transmission Date: 20240715
  Serious: Yes (Other)
  Sender: FDA-Public Use
  Company Number: CN-SUN PHARMACEUTICAL INDUSTRIES LTD-2024R1-450471

PATIENT
  Age: 67 Year
  Sex: Female

DRUGS (3)
  1. DEXAMETHASONE [Suspect]
     Active Substance: DEXAMETHASONE
     Indication: Primary amyloidosis
     Dosage: 20 MILLIGRAM, WEEKLY
     Route: 065
  2. DARATUMUMAB [Suspect]
     Active Substance: DARATUMUMAB
     Indication: Primary amyloidosis
     Dosage: 800 MILLIGRAM (ONCE A WEEK FOR 4 WEEKS)
     Route: 042
  3. SELINEXOR [Suspect]
     Active Substance: SELINEXOR
     Indication: Primary amyloidosis
     Dosage: 60 MILLIGRAM
     Route: 048

REACTIONS (1)
  - Therapy partial responder [Unknown]
